FAERS Safety Report 11444175 (Version 1)
Quarter: 2015Q3

REPORT INFORMATION
  Report Type: Report from Study
  Country: US (occurrence: US)
  Receive Date: 20150901
  Receipt Date: 20150901
  Transmission Date: 20151125
  Serious: Yes (Other)
  Sender: FDA-Public Use
  Company Number: US-AMGEN-USASP2015087660

PATIENT
  Age: 49 Year
  Sex: Female

DRUGS (1)
  1. ENBREL [Suspect]
     Active Substance: ETANERCEPT
     Indication: ANKYLOSING SPONDYLITIS
     Dosage: 50 MG, QWK
     Route: 065
     Dates: end: 2014

REACTIONS (10)
  - Pain in extremity [Unknown]
  - Anaemia [Unknown]
  - Dyspnoea [Unknown]
  - Colonoscopy [Recovered/Resolved]
  - Dehydration [Unknown]
  - Crohn^s disease [Unknown]
  - Memory impairment [Recovered/Resolved]
  - Back pain [Unknown]
  - Musculoskeletal pain [Unknown]
  - Bronchitis [Recovered/Resolved]

NARRATIVE: CASE EVENT DATE: 2014
